FAERS Safety Report 17771501 (Version 2)
Quarter: 2021Q1

REPORT INFORMATION
  Report Type: Spontaneous
  Country: US (occurrence: US)
  Receive Date: 20200512
  Receipt Date: 20210101
  Transmission Date: 20210419
  Serious: Yes (Other)
  Sender: FDA-Public Use
  Company Number: US-TEVA-2020-US-1235107

PATIENT
  Age: 65 Year
  Sex: Female

DRUGS (4)
  1. DISOPYRAMIDE [Suspect]
     Active Substance: DISOPYRAMIDE
     Dosage: 100 3X DAY
     Route: 065
  2. DISOPYRAMIDE [Suspect]
     Active Substance: DISOPYRAMIDE
     Dosage: 100 2X DAY
     Route: 065
  3. DISOPYRAMIDE [Suspect]
     Active Substance: DISOPYRAMIDE
     Route: 065
  4. DISOPYRAMIDE [Suspect]
     Active Substance: DISOPYRAMIDE
     Dosage: 150 3X DAY
     Route: 065

REACTIONS (5)
  - Kidney infection [Not Recovered/Not Resolved]
  - Urinary tract disorder [Unknown]
  - Urinary hesitation [Not Recovered/Not Resolved]
  - Urinary retention [Recovered/Resolved]
  - Urinary tract infection [Unknown]

NARRATIVE: CASE EVENT DATE: 2020
